FAERS Safety Report 16313829 (Version 13)
Quarter: 2025Q2

REPORT INFORMATION
  Report Type: Spontaneous
  Country: US (occurrence: US)
  Receive Date: 20190515
  Receipt Date: 20250502
  Transmission Date: 20250717
  Serious: No
  Sender: PFIZER
  Company Number: US-PFIZER INC-2019205737

PATIENT
  Age: 65 Year
  Sex: Female
  Weight: 62 kg

DRUGS (14)
  1. XELJANZ XR [Suspect]
     Active Substance: TOFACITINIB CITRATE
     Indication: Fibromyalgia
     Dosage: 11 MG, 1X/DAY
     Route: 048
  2. XELJANZ XR [Suspect]
     Active Substance: TOFACITINIB CITRATE
     Indication: Rheumatoid arthritis
     Dosage: 11 MG, 1X/DAY
     Route: 048
  3. XELJANZ XR [Suspect]
     Active Substance: TOFACITINIB CITRATE
     Dosage: 11 MG, 1X/DAY (ONCE A DAY IN THE MORNING)
  4. XELJANZ XR [Suspect]
     Active Substance: TOFACITINIB CITRATE
  5. ADDERALL [Concomitant]
     Active Substance: AMPHETAMINE ASPARTATE\AMPHETAMINE SULFATE\DEXTROAMPHETAMINE SACCHARATE\DEXTROAMPHETAMINE SULFATE
  6. CYMBALTA [Concomitant]
     Active Substance: DULOXETINE HYDROCHLORIDE
  7. ESTRADIOL [Concomitant]
     Active Substance: ESTRADIOL
  8. FOLIC ACID [Concomitant]
     Active Substance: FOLIC ACID
  9. LUNESTA [Concomitant]
     Active Substance: ESZOPICLONE
  10. LYRICA [Concomitant]
     Active Substance: PREGABALIN
  11. NEXIUM I.V. [Concomitant]
     Active Substance: ESOMEPRAZOLE SODIUM
  12. OXYCODONE [Concomitant]
     Active Substance: OXYCODONE
  13. SYNTHROID [Concomitant]
     Active Substance: LEVOTHYROXINE SODIUM
  14. SEROQUEL [Concomitant]
     Active Substance: QUETIAPINE FUMARATE

REACTIONS (10)
  - Therapeutic product effect incomplete [Unknown]
  - Somatic symptom disorder [Unknown]
  - Malaise [Not Recovered/Not Resolved]
  - Feeling abnormal [Unknown]
  - Pain [Not Recovered/Not Resolved]
  - Arthralgia [Unknown]
  - Sensitivity to weather change [Unknown]
  - Depression [Unknown]
  - Insomnia [Unknown]
  - Product prescribing error [Unknown]
